FAERS Safety Report 9249776 (Version 2)
Quarter: 2013Q2

REPORT INFORMATION
  Report Type: Report from Study
  Country: US (occurrence: US)
  Receive Date: 20130423
  Receipt Date: 20130626
  Transmission Date: 20140414
  Serious: Yes (Hospitalization)
  Sender: FDA-Public Use
  Company Number: US-ELI_LILLY_AND_COMPANY-US201109007149

PATIENT
  Age: 84 Year
  Sex: Female

DRUGS (8)
  1. TERIPARATIDE [Suspect]
     Indication: OSTEOPOROSIS
     Dosage: UNK
     Dates: start: 201110, end: 201210
  2. TERIPARATIDE [Suspect]
     Dosage: UNK, QD
     Dates: start: 20130412
  3. CALCIUM + VITAMIN D [Concomitant]
     Dosage: 2 DF, QD
  4. LEVOTHYROXINE SODIUM [Concomitant]
     Dosage: UNK DF, UNK
  5. ZOLPIDEM TARTRATE [Concomitant]
     Dosage: 1 DF, EACH EVENING
  6. DIPHENOXYLATE/ATROPINE [Concomitant]
     Indication: DIARRHOEA
     Dosage: UNK, EVERY 4 HRS
  7. DICYCLOMINE [Concomitant]
     Dosage: 1 DF, TID
  8. PROBIOTIC ACIDOPHILUS [Concomitant]
     Dosage: 2 DF, QD

REACTIONS (2)
  - Clostridium difficile infection [Recovered/Resolved]
  - Drug dose omission [Unknown]
